FAERS Safety Report 18663137 (Version 2)
Quarter: 2021Q3

REPORT INFORMATION
  Report Type: Report from Study
  Country: US (occurrence: US)
  Receive Date: 20201224
  Receipt Date: 20210930
  Transmission Date: 20211014
  Serious: Yes (Hospitalization, Other)
  Sender: FDA-Public Use
  Company Number: US-TAKEDA-US202013843

PATIENT
  Age: 20 Year
  Sex: Female

DRUGS (3)
  1. LANADELUMAB [Suspect]
     Active Substance: LANADELUMAB
     Indication: RHEUMATOID ARTHRITIS
  2. LANADELUMAB [Suspect]
     Active Substance: LANADELUMAB
     Indication: IMMUNE SYSTEM DISORDER
     Dosage: 300 MILLIGRAM, 1X/2WKS
     Route: 058
     Dates: start: 2020
  3. LANADELUMAB [Suspect]
     Active Substance: LANADELUMAB
     Indication: GENITOURINARY SYMPTOM
     Dosage: 300 MILLIGRAM, 1X/2WKS
     Route: 058
     Dates: start: 202002

REACTIONS (3)
  - COVID-19 pneumonia [Unknown]
  - Product dose omission in error [Unknown]
  - Gastroenteritis viral [Unknown]

NARRATIVE: CASE EVENT DATE: 20201206
